FAERS Safety Report 9656789 (Version 2)
Quarter: 2013Q4

REPORT INFORMATION
  Report Type: Report from Study
  Country: US (occurrence: US)
  Receive Date: 20131030
  Receipt Date: 20131111
  Transmission Date: 20140711
  Serious: Yes (Hospitalization, Other)
  Sender: FDA-Public Use
  Company Number: US-BRISTOL-MYERS SQUIBB COMPANY-19639020

PATIENT
  Age: 58 Year
  Sex: Female
  Weight: 67.9 kg

DRUGS (5)
  1. IPILIMUMAB [Suspect]
     Indication: MALIGNANT MELANOMA
     Dosage: LAST ADMINISTERED DOSE:09/10/13; TOTAL DOSE (692 MG)
     Route: 042
     Dates: start: 20130710, end: 20130923
  2. ADVIL [Concomitant]
  3. CALCIUM [Concomitant]
  4. PANTOLOC [Concomitant]
  5. TYLENOL [Concomitant]
     Dosage: EXTRA STRENGTH

REACTIONS (3)
  - Adrenal insufficiency [Recovering/Resolving]
  - Headache [Recovering/Resolving]
  - Hypophysitis [Recovering/Resolving]
